FAERS Safety Report 10396761 (Version 2)
Quarter: 2014Q3

REPORT INFORMATION
  Report Type: Spontaneous
  Country: US (occurrence: US)
  Receive Date: 20140820
  Receipt Date: 20140820
  Transmission Date: 20150326
  Serious: Yes (Other)
  Sender: FDA-Public Use
  Company Number: US-JNJFOC-20140802259

PATIENT
  Age: 73 Year
  Sex: Male
  Weight: 127.01 kg

DRUGS (7)
  1. XALATAN [Concomitant]
     Active Substance: LATANOPROST
     Indication: EYE DISORDER
  2. LANTUS [Concomitant]
     Active Substance: INSULIN GLARGINE
     Indication: DIABETES MELLITUS
     Dates: start: 2010
  3. METOPROLOL [Concomitant]
     Active Substance: METOPROLOL
  4. METFORMIN [Concomitant]
     Active Substance: METFORMIN HYDROCHLORIDE
     Indication: DIABETES MELLITUS
  5. CRESTOR [Concomitant]
     Active Substance: ROSUVASTATIN CALCIUM
  6. INVOKANA [Suspect]
     Active Substance: CANAGLIFLOZIN
     Indication: TYPE 2 DIABETES MELLITUS
     Route: 048
     Dates: start: 20140620, end: 20140801
  7. NOVOLOG [Concomitant]
     Active Substance: INSULIN ASPART
     Indication: DIABETES MELLITUS
     Route: 058
     Dates: start: 2010

REACTIONS (10)
  - Unevaluable event [Not Recovered/Not Resolved]
  - Pruritus [Unknown]
  - Skin lesion [Not Recovered/Not Resolved]
  - Dizziness [Unknown]
  - Vomiting [Recovered/Resolved]
  - Vision blurred [Not Recovered/Not Resolved]
  - Dry mouth [Unknown]
  - Rash [Not Recovered/Not Resolved]
  - Dysphagia [Recovered/Resolved]
  - Asthenia [Not Recovered/Not Resolved]

NARRATIVE: CASE EVENT DATE: 201408
